FAERS Safety Report 6055813-X (Version None)
Quarter: 2009Q1

REPORT INFORMATION
  Report Type: 
  Country: None (occurrence: None)
  Receive Date: 20090126
  Receipt Date: 20090115
  Transmission Date: 20090719
  Serious: Yes (Other)
  Sender: FDA-Public Use
  Company Number: 2008JP001106

PATIENT
  Age: 57 Year
  Sex: Male

DRUGS (6)
  1. PROGRAF [Suspect]
     Indication: CORD BLOOD TRANSPLANT THERAPY
  2. PREDNISOLONE (PREDNISOLONE) FORMULATION [Concomitant]
  3. GANCICLOVIR [Concomitant]
  4. GAMMA GLOBULIN (IMMUNGLOBULIN) [Concomitant]
  5. FLUDARABINE PHOSPHATE [Concomitant]
  6. MELPHALAN (MELPHALAN) [Concomitant]

REACTIONS (9)
  - ACUTE GRAFT VERSUS HOST DISEASE IN SKIN [None]
  - CSF PROTEIN INCREASED [None]
  - CYTOMEGALOVIRUS ANTIGEN POSITIVE [None]
  - DEMYELINATING POLYNEUROPATHY [None]
  - DIARRHOEA [None]
  - GASTROINTESTINAL DISORDER [None]
  - OCULAR ICTERUS [None]
  - RASH [None]
  - SKIN EXFOLIATION [None]
